FAERS Safety Report 5728615-9 (Version None)
Quarter: 2008Q2

REPORT INFORMATION
  Report Type: 
  Country: None (occurrence: None)
  Receive Date: 20080502
  Receipt Date: 20080502
  Transmission Date: 20081010
  Serious: Yes (Life-Threatening, Hospitalization)
  Sender: FDA-Public Use
  Company Number: None

PATIENT
  Age: 30 Year
  Sex: Female
  Weight: 43 kg

DRUGS (2)
  1. BEVACIZUMAB  7.5MG/KG (GENENTECH) [Suspect]
     Indication: METASTATIC GASTRIC CANCER
     Dosage: 345MG (7.5MG/KG) EVERY 21 DAYS IV
     Route: 042
     Dates: start: 20070501, end: 20071001
  2. BEVACIZUMAB  7.5MG/KG (GENENTECH) [Suspect]
     Indication: METASTATIC GASTRIC CANCER
     Dosage: 345MG (7.5MG/KG) EVERY 21 DAYS IV
     Route: 042
     Dates: start: 20080225

REACTIONS (2)
  - DISEASE PROGRESSION [None]
  - REVERSIBLE POSTERIOR LEUKOENCEPHALOPATHY SYNDROME [None]
